FAERS Safety Report 6512065-1 (Version None)
Quarter: 2009Q4

REPORT INFORMATION
  Report Type: 
  Country: None (occurrence: None)
  Receive Date: 20091222
  Receipt Date: 20090526
  Transmission Date: 20100525
  Serious: No
  Sender: FDA-Public Use
  Company Number: US-ASTRAZENECA-2009UW13388

PATIENT
  Sex: Male

DRUGS (6)
  1. CRESTOR [Suspect]
     Indication: BLOOD CHOLESTEROL INCREASED
     Route: 048
     Dates: start: 20090501, end: 20090525
  2. ALTACE [Concomitant]
  3. ASPIRIN [Concomitant]
  4. ALLOPURINOL [Concomitant]
  5. FLOMAX [Concomitant]
  6. METOPROLOL TARTRATE [Concomitant]

REACTIONS (6)
  - ABDOMINAL PAIN UPPER [None]
  - BURNING SENSATION [None]
  - HEADACHE [None]
  - MUSCLE SPASMS [None]
  - NAUSEA [None]
  - PARAESTHESIA [None]
